FAERS Safety Report 4430231-6 (Version None)
Quarter: 2004Q3

REPORT INFORMATION
  Report Type: 
  Country: None (occurrence: None)
  Receive Date: 20040817
  Receipt Date: 20040802
  Transmission Date: 20050211
  Serious: Yes (Hospitalization)
  Sender: FDA-Public Use
  Company Number: 2004-FF-00468FF

PATIENT
  Age: 53 Year
  Sex: Female

DRUGS (1)
  1. MOBIC [Suspect]
     Route: 030
     Dates: start: 20040521, end: 20040521

REACTIONS (4)
  - HYPERAESTHESIA [None]
  - PAIN IN EXTREMITY [None]
  - PARALYSIS [None]
  - POST PROCEDURAL COMPLICATION [None]
